FAERS Safety Report 13137737 (Version 3)
Quarter: 2017Q1

REPORT INFORMATION
  Report Type: Spontaneous
  Country: US (occurrence: US)
  Receive Date: 20170123
  Receipt Date: 20170123
  Transmission Date: 20170428
  Serious: No
  Sender: FDA-Public Use
  Company Number: US-UNITED THERAPEUTICS-UNT-2016-013234

PATIENT
  Age: 72 Year
  Sex: Female
  Weight: 72.56 kg

DRUGS (3)
  1. ORENITRAM [Suspect]
     Active Substance: TREPROSTINIL
     Dosage: 3 MG, TID
     Route: 048
  2. REMODULIN [Suspect]
     Active Substance: TREPROSTINIL
     Indication: PULMONARY ARTERIAL HYPERTENSION
     Dosage: 0.02975 ?G/KG, CONTINUING
     Route: 058
     Dates: start: 20160728
  3. ORENITRAM [Suspect]
     Active Substance: TREPROSTINIL
     Indication: PULMONARY ARTERIAL HYPERTENSION
     Dosage: 1 MG, TID
     Route: 048
     Dates: start: 20160707

REACTIONS (7)
  - Wheezing [Unknown]
  - Oxygen saturation decreased [Unknown]
  - Anaemia [Unknown]
  - Headache [Unknown]
  - Cough [Unknown]
  - Oxygen consumption increased [Unknown]
  - Oedema [Unknown]

NARRATIVE: CASE EVENT DATE: 201608
